FAERS Safety Report 21824785 (Version 1)
Quarter: 2023Q1

REPORT INFORMATION
  Report Type: Spontaneous
  Country: BE (occurrence: BE)
  Receive Date: 20230105
  Receipt Date: 20230105
  Transmission Date: 20230418
  Serious: Yes (Other)
  Sender: FDA-Public Use
  Company Number: None

PATIENT
  Age: 52 Year
  Sex: Female
  Weight: 92.6 kg

DRUGS (6)
  1. CARBOPLATIN [Suspect]
     Active Substance: CARBOPLATIN
     Indication: Adenocarcinoma
     Dosage: 172.5MG ON 21/10 - 171MG ON 31/10 - 163.5MG ON 7/11 - 169.5MG ON 14/11 - 120MG ON 21/11 SCHAPPING CA
     Dates: start: 20221021
  2. PACLITAXEL [Suspect]
     Active Substance: PACLITAXEL
     Indication: Adenocarcinoma
     Dosage: 174.4MG ON 21/10, 31/10, 7/11, 14/11, 21/11 156MG ON 28/11 AND 5/12 171.2MG SCHEDULED ON 19/12
     Dates: start: 20221021
  3. KEYTRUDA [Suspect]
     Active Substance: PEMBROLIZUMAB
     Indication: Adenocarcinoma
     Dosage: 200MG 3-WEEKLY;  FIRST ADMINISTRATION ON 21/10/2022; NEXT ADMINISTRATION ON 14/11/2022; FIRST OCCURR
     Route: 042
     Dates: start: 20221021, end: 20221114
  4. COVERAM [Concomitant]
     Active Substance: AMLODIPINE\PERINDOPRIL
     Indication: Product used for unknown indication
  5. IBUPROFEN [Concomitant]
     Active Substance: IBUPROFEN
     Indication: Product used for unknown indication
  6. AUGMENTIN [Concomitant]
     Active Substance: AMOXICILLIN\CLAVULANATE POTASSIUM
     Indication: Product used for unknown indication

REACTIONS (5)
  - Acute kidney injury [None]
  - Pyuria [None]
  - Urinary sediment [None]
  - Haematuria [None]
  - Blood creatine increased [None]

NARRATIVE: CASE EVENT DATE: 20221121
